FAERS Safety Report 15679048 (Version 2)
Quarter: 2019Q4

REPORT INFORMATION
  Report Type: Spontaneous
  Country: MY (occurrence: MY)
  Receive Date: 20181203
  Receipt Date: 20191209
  Transmission Date: 20200122
  Serious: Yes (Other)
  Sender: FDA-Public Use
  Company Number: MY-009507513-1811MYS011158

PATIENT
  Sex: Female

DRUGS (1)
  1. ZERBAXA [Suspect]
     Active Substance: CEFTOLOZANE SULFATE\TAZOBACTAM SODIUM
     Indication: PSEUDOMONAS INFECTION
     Dosage: 3 GRAM, TID(TDS:THRICE DAILY), DOSE INTERVAL: 8 HOURS
     Route: 042

REACTIONS (2)
  - Creatinine urine decreased [Recovered/Resolved]
  - Renal impairment [Recovered/Resolved]
